FAERS Safety Report 17943123 (Version 2)
Quarter: 2020Q3

REPORT INFORMATION
  Report Type: Report from Study
  Country: US (occurrence: US)
  Receive Date: 20200625
  Receipt Date: 20200904
  Transmission Date: 20201103
  Serious: Yes (Hospitalization, Other)
  Sender: FDA-Public Use
  Company Number: US-TAKEDA-2019TUS022748

PATIENT
  Age: 63 Year
  Sex: Female

DRUGS (11)
  1. PONATINIB [Suspect]
     Active Substance: PONATINIB
     Dosage: 15 MILLIGRAM, QOD
     Route: 048
     Dates: start: 201909
  2. ACYCLOVIR                          /00587301/ [Concomitant]
     Active Substance: ACYCLOVIR
     Dosage: UNK
  3. PONATINIB [Suspect]
     Active Substance: PONATINIB
     Indication: ACUTE LYMPHOCYTIC LEUKAEMIA
     Dosage: 15 MILLIGRAM, QD
     Route: 048
  4. PREDNISONE. [Concomitant]
     Active Substance: PREDNISONE
     Dosage: UNK
  5. BUDESONIDE. [Concomitant]
     Active Substance: BUDESONIDE
     Dosage: UNK
  6. DEXAMETHASONE. [Concomitant]
     Active Substance: DEXAMETHASONE
     Dosage: UNK
     Route: 065
  7. LORAZEPAM. [Concomitant]
     Active Substance: LORAZEPAM
     Dosage: UNK
  8. PONATINIB [Suspect]
     Active Substance: PONATINIB
     Indication: CHRONIC MYELOID LEUKAEMIA
     Dosage: 30 MILLIGRAM, QD
     Route: 048
     Dates: start: 20190330
  9. ROSUVASTATIN CALCIUM. [Concomitant]
     Active Substance: ROSUVASTATIN CALCIUM
     Dosage: UNK
  10. ALBUTEROL SULFATE. [Concomitant]
     Active Substance: ALBUTEROL SULFATE
     Dosage: UNK
  11. TOPIRAMATE. [Concomitant]
     Active Substance: TOPIRAMATE
     Dosage: UNK

REACTIONS (10)
  - Graft versus host disease in skin [Unknown]
  - Skin discolouration [Recovered/Resolved with Sequelae]
  - Fall [Unknown]
  - Off label use [Unknown]
  - Influenza [Unknown]
  - Syncope [Recovered/Resolved]
  - Pneumonia [Unknown]
  - Skin exfoliation [Recovered/Resolved with Sequelae]
  - Platelet count decreased [Unknown]
  - Stomatitis [Unknown]

NARRATIVE: CASE EVENT DATE: 201909
